FAERS Safety Report 9245423 (Version 1)
Quarter: 2013Q2

REPORT INFORMATION
  Report Type: Spontaneous
  Country: US (occurrence: US)
  Receive Date: 20130422
  Receipt Date: 20130422
  Transmission Date: 20140414
  Serious: No
  Sender: FDA-Public Use
  Company Number: US-PFIZER INC-2013125383

PATIENT
  Age: 67 Year
  Sex: Male
  Weight: 92.06 kg

DRUGS (9)
  1. LYRICA [Suspect]
     Indication: PAIN IN EXTREMITY
     Dosage: 50 MG, 3X/DAY
     Dates: start: 201304
  2. LYRICA [Suspect]
     Dosage: 100 MG, 3X/DAY
     Dates: start: 201304
  3. NEXIUM [Concomitant]
     Indication: GASTRIC DISORDER
     Dosage: UNK
  4. METFORMIN [Concomitant]
     Indication: DIABETES MELLITUS
     Dosage: UNK
  5. CLOPIDOGREL BISULFATE [Concomitant]
     Indication: BLOOD DISORDER
     Dosage: UNK
  6. ZOCOR [Concomitant]
     Indication: BLOOD DISORDER
     Dosage: UNK
  7. NORVASC [Concomitant]
     Indication: CARDIAC DISORDER
     Dosage: UNK
  8. COZAAR [Concomitant]
     Indication: CARDIAC DISORDER
     Dosage: UNK
  9. ASPIRIN [Concomitant]
     Dosage: UNK, 1X/DAY

REACTIONS (1)
  - Drug ineffective [Unknown]
